FAERS Safety Report 12059462 (Version 1)
Quarter: 2016Q1

REPORT INFORMATION
  Report Type: Spontaneous
  Country: US (occurrence: None)
  Receive Date: 20160209
  Receipt Date: 20160209
  Transmission Date: 20160526
  Serious: Yes (Hospitalization)
  Sender: FDA-Public Use
  Company Number: None

PATIENT
  Age: 71 Year
  Sex: Male
  Weight: 97 kg

DRUGS (1)
  1. METRONIDAZOLE. [Suspect]
     Active Substance: METRONIDAZOLE
     Indication: TOOTH INFECTION
     Dates: start: 20150709, end: 20150710

REACTIONS (6)
  - Chest pain [None]
  - Atelectasis [None]
  - Mass [None]
  - Renal cyst [None]
  - Acute kidney injury [None]
  - Tooth abscess [None]

NARRATIVE: CASE EVENT DATE: 20150710
